FAERS Safety Report 16037905 (Version 1)
Quarter: 2019Q1

REPORT INFORMATION
  Report Type: Spontaneous
  Country: FR (occurrence: FR)
  Receive Date: 20190305
  Receipt Date: 20190305
  Transmission Date: 20190418
  Serious: Yes (Other)
  Sender: FDA-Public Use
  Company Number: FR-MYLANLABS-2019M1019166

PATIENT
  Age: 83 Year
  Sex: Male

DRUGS (6)
  1. GALVUS [Suspect]
     Active Substance: VILDAGLIPTIN
     Indication: PRODUCT USED FOR UNKNOWN INDICATION
     Dosage: UNK
  2. CEFOTAXIME [Suspect]
     Active Substance: CEFOTAXIME SODIUM
     Indication: INFECTION
     Dosage: 3 GRAM, QD
     Route: 051
     Dates: start: 20180501
  3. ATORVASTATIN [Suspect]
     Active Substance: ATORVASTATIN
     Indication: CARDIOVASCULAR DISORDER
     Dosage: 10 MILLIGRAM, QD
     Route: 048
     Dates: start: 2014, end: 201805
  4. NEO-MERCAZOLE [Suspect]
     Active Substance: CARBIMAZOLE
     Indication: HYPERTHYROIDISM
     Dosage: 5 MILLIGRAM, QD
     Route: 048
     Dates: start: 20180501
  5. REPAGLINIDE. [Suspect]
     Active Substance: REPAGLINIDE
     Indication: DIABETES MELLITUS
     Dosage: 12 MILLIGRAM, QD
     Route: 048
     Dates: start: 20180501
  6. LASILIX                            /00032601/ [Suspect]
     Active Substance: FUROSEMIDE
     Indication: HYPERVOLAEMIA
     Dosage: 80 MILLIGRAM, QD
     Route: 048
     Dates: start: 20180501

REACTIONS (1)
  - Thrombocytopenia [Not Recovered/Not Resolved]

NARRATIVE: CASE EVENT DATE: 20180511
